FAERS Safety Report 17616722 (Version 1)
Quarter: 2020Q1

REPORT INFORMATION
  Report Type: Spontaneous
  Country: US (occurrence: US)
  Receive Date: 20200331
  Receipt Date: 20200331
  Transmission Date: 20200409
  Serious: Yes (Hospitalization)
  Sender: FDA-Public Use
  Company Number: None

PATIENT
  Age: 75 Year
  Sex: Male
  Weight: 101.6 kg

DRUGS (1)
  1. SACUBITRIL/VALSARTAN (SACUBITRIL 24MG/VALSARTAN 26MG TAB) [Suspect]
     Active Substance: SACUBITRIL\VALSARTAN
     Indication: CARDIAC FAILURE CONGESTIVE
     Dosage: ?          OTHER DOSE:24/26MG;?
     Route: 048
     Dates: start: 20200113, end: 20200324

REACTIONS (2)
  - Hypotension [None]
  - Syncope [None]

NARRATIVE: CASE EVENT DATE: 20200208
